FAERS Safety Report 7104261-X (Version None)
Quarter: 2010Q4

REPORT INFORMATION
  Report Type: 
  Country: None (occurrence: None)
  Receive Date: 20101115
  Receipt Date: 20100614
  Transmission Date: 20110411
  Serious: Yes (Disabling, Other)
  Sender: FDA-Public Use
  Company Number: US-ALLERGAN-1007771US

PATIENT
  Age: 54 Year
  Sex: Female
  Weight: 60.771 kg

DRUGS (1)
  1. BOTOXA? [Suspect]
     Indication: FACIAL SPASM

REACTIONS (4)
  - HAEMATOMA [None]
  - OCULAR SURFACE DISEASE [None]
  - VIITH NERVE PARALYSIS [None]
  - VISION BLURRED [None]
